FAERS Safety Report 22277201 (Version 1)
Quarter: 2023Q2

REPORT INFORMATION
  Report Type: Spontaneous
  Country: NL (occurrence: None)
  Receive Date: 20230503
  Receipt Date: 20230503
  Transmission Date: 20230721
  Serious: Yes (Life-Threatening)
  Sender: FDA-Public Use
  Company Number: None

PATIENT
  Sex: Female
  Weight: 63 kg

DRUGS (2)
  1. TOCILIZUMAB [Suspect]
     Active Substance: TOCILIZUMAB
     Indication: Gene mutation
     Dosage: 1XWEEK; ADMINISTERED 3 TIMES
     Route: 065
     Dates: start: 20230330, end: 20230414
  2. PREDNISONE [Suspect]
     Active Substance: PREDNISONE
     Indication: Gene mutation
     Dosage: 1D60 MG, ON DEMAND
     Route: 048
     Dates: start: 20230101

REACTIONS (1)
  - Ileal perforation [Not Recovered/Not Resolved]
